FAERS Safety Report 17681559 (Version 2)
Quarter: 2020Q2

REPORT INFORMATION
  Report Type: Report from Study
  Country: DE (occurrence: DE)
  Receive Date: 20200417
  Receipt Date: 20200427
  Transmission Date: 20200714
  Serious: Yes (Hospitalization, Other)
  Sender: FDA-Public Use
  Company Number: NVSC2020DE083867

PATIENT
  Sex: Female
  Weight: 68 kg

DRUGS (19)
  1. KISQALI [Suspect]
     Active Substance: RIBOCICLIB
     Indication: BREAST CANCER METASTATIC
     Dosage: 600 MG, QD (SCHEME 21 DAYS INTAKE AND 7 DAYS PAUSE)
     Route: 048
     Dates: start: 20180601, end: 20180621
  2. KISQALI [Suspect]
     Active Substance: RIBOCICLIB
     Dosage: 600 MG, QD (SCHEME 21 DAYS INTAKE AND 7 DAYS PAUSE)
     Route: 048
     Dates: start: 20181123, end: 20181213
  3. KISQALI [Suspect]
     Active Substance: RIBOCICLIB
     Dosage: 600 MG, QD (SCHEME 21 DAYS INTAKE AND 7 DAYS PAUSE)
     Route: 048
     Dates: start: 20190215, end: 20190307
  4. KISQALI [Suspect]
     Active Substance: RIBOCICLIB
     Dosage: 600 MG, QD (SCHEME 21 DAYS INTAKE AND 7 DAYS PAUSE)
     Route: 048
     Dates: start: 20190607, end: 20190627
  5. KISQALI [Suspect]
     Active Substance: RIBOCICLIB
     Dosage: 600 MG, QD (SCHEME 21 DAYS INTAKE AND 7 DAYS PAUSE)
     Route: 048
     Dates: start: 20190802, end: 20190822
  6. KISQALI [Suspect]
     Active Substance: RIBOCICLIB
     Dosage: 600 MG, QD (SCHEME 21 DAYS INTAKE AND 7 DAYS PAUSE)
     Route: 048
     Dates: start: 20180824, end: 20180913
  7. KISQALI [Suspect]
     Active Substance: RIBOCICLIB
     Dosage: 600 MG, QD (SCHEME 21 DAYS INTAKE AND 7 DAYS PAUSE)
     Route: 048
     Dates: start: 20181221, end: 20190110
  8. KISQALI [Suspect]
     Active Substance: RIBOCICLIB
     Dosage: 600 MG, QD (SCHEME 21 DAYS INTAKE AND 7 DAYS PAUSE)
     Route: 048
     Dates: start: 20190315, end: 20190404
  9. KISQALI [Suspect]
     Active Substance: RIBOCICLIB
     Dosage: 600 MG, QD (SCHEME 21 DAYS INTAKE AND 7 DAYS PAUSE)
     Route: 048
     Dates: start: 20190927, end: 20200305
  10. KISQALI [Suspect]
     Active Substance: RIBOCICLIB
     Dosage: 600 MG, QD (SCHEME 21 DAYS INTAKE AND 7 DAYS PAUSE)
     Route: 048
     Dates: start: 20180727, end: 20180816
  11. KISQALI [Suspect]
     Active Substance: RIBOCICLIB
     Dosage: 600 MG, QD (SCHEME 21 DAYS INTAKE AND 7 DAYS PAUSE)
     Route: 048
     Dates: start: 20180928, end: 20181018
  12. KISQALI [Suspect]
     Active Substance: RIBOCICLIB
     Dosage: 600 MG, QD (SCHEME 21 DAYS INTAKE AND 7 DAYS PAUSE)
     Route: 048
     Dates: start: 20190510, end: 20190530
  13. ANASTROZOLE. [Suspect]
     Active Substance: ANASTROZOLE
     Indication: BREAST CANCER METASTATIC
     Dosage: 1 MG, QD
     Route: 048
     Dates: start: 20180601, end: 20200331
  14. KISQALI [Suspect]
     Active Substance: RIBOCICLIB
     Dosage: 600 MG, QD (SCHEME 21 DAYS INTAKE AND 7 DAYS PAUSE)
     Route: 048
     Dates: start: 20190118, end: 20190207
  15. KISQALI [Suspect]
     Active Substance: RIBOCICLIB
     Dosage: 600 MG, QD (SCHEME 21 DAYS INTAKE AND 7 DAYS PAUSE)
     Route: 048
     Dates: start: 20190412, end: 20190502
  16. KISQALI [Suspect]
     Active Substance: RIBOCICLIB
     Dosage: 600 MG, QD (SCHEME 21 DAYS INTAKE AND 7 DAYS PAUSE)
     Route: 048
     Dates: start: 20180629, end: 20180719
  17. KISQALI [Suspect]
     Active Substance: RIBOCICLIB
     Dosage: 600 MG, QD (SCHEME 21 DAYS INTAKE AND 7 DAYS PAUSE)
     Route: 048
     Dates: start: 20190705, end: 20190725
  18. KISQALI [Suspect]
     Active Substance: RIBOCICLIB
     Dosage: 600 MG, QD (SCHEME 21 DAYS INTAKE AND 7 DAYS PAUSE)
     Route: 048
     Dates: start: 20181026, end: 20181115
  19. KISQALI [Suspect]
     Active Substance: RIBOCICLIB
     Dosage: 600 MG, QD (SCHEME 21 DAYS INTAKE AND 7 DAYS PAUSE)
     Route: 048
     Dates: start: 20190830, end: 20190919

REACTIONS (3)
  - Colon cancer [Recovered/Resolved]
  - Colon cancer [Recovered/Resolved]
  - Abdominal pain lower [Not Recovered/Not Resolved]

NARRATIVE: CASE EVENT DATE: 20200207
